FAERS Safety Report 23984829 (Version 2)
Quarter: 2024Q3

REPORT INFORMATION
  Report Type: Spontaneous
  Country: IT (occurrence: IT)
  Receive Date: 20240618
  Receipt Date: 20240710
  Transmission Date: 20241016
  Serious: Yes (Other)
  Sender: AUROBINDO
  Company Number: IT-ELI_LILLY_AND_COMPANY-IT202405015456

PATIENT
  Age: 39 Year
  Sex: Female

DRUGS (4)
  1. EXEMESTANE [Suspect]
     Active Substance: EXEMESTANE
     Indication: Hormone therapy
     Dosage: UNK
     Route: 065
  2. ABEMACICLIB [Suspect]
     Active Substance: ABEMACICLIB
     Indication: Breast cancer
     Dosage: 200 MILLIGRAM, ONCE A DAY (100 MG, BID)
     Route: 065
     Dates: start: 202201
  3. ABEMACICLIB [Suspect]
     Active Substance: ABEMACICLIB
     Dosage: UNK, TWO TIMES A DAY
     Route: 065
     Dates: start: 202201
  4. LETROZOLE [Concomitant]
     Active Substance: LETROZOLE
     Indication: Product used for unknown indication
     Dosage: UNK
     Route: 065

REACTIONS (4)
  - Neutropenia [Unknown]
  - Asthenia [Unknown]
  - Diarrhoea [Recovering/Resolving]
  - Arthralgia [Recovering/Resolving]

NARRATIVE: CASE EVENT DATE: 20220301
